FAERS Safety Report 9162975 (Version 1)
Quarter: 2013Q1

REPORT INFORMATION
  Report Type: Spontaneous
  Country: JP (occurrence: JP)
  Receive Date: 20130314
  Receipt Date: 20130314
  Transmission Date: 20140127
  Serious: Yes (Death)
  Sender: FDA-Public Use
  Company Number: JP-BAXTER-2013BAX009286

PATIENT
  Age: 75 Year
  Sex: Male

DRUGS (1)
  1. ENDOXAN 1G [Suspect]
     Indication: GRANULOMATOSIS WITH POLYANGIITIS
     Route: 065

REACTIONS (1)
  - Epstein-Barr virus associated lymphoma [Fatal]
